FAERS Safety Report 8530549-1 (Version None)
Quarter: 2012Q3

REPORT INFORMATION
  Report Type: 
  Country: None (occurrence: None)
  Receive Date: 20120723
  Receipt Date: 20120629
  Transmission Date: 20120928
  Serious: Yes (Hospitalization)
  Sender: FDA-Public Use
  Company Number: DK-SANOFI-AVENTIS-2011SA039429

PATIENT
  Age: 64 Year
  Sex: Female

DRUGS (8)
  1. PLACEBO [Suspect]
  2. OPTIPEN [Suspect]
  3. PANTOPRAZOLE [Concomitant]
     Route: 048
     Dates: start: 20110201
  4. SIMVASTATIN [Concomitant]
     Dates: start: 20040301
  5. LERCANIDIPINE [Concomitant]
     Indication: HYPERTENSION
     Dates: start: 20101001
  6. CODEINE SULFATE [Concomitant]
     Indication: COUGH
     Dates: start: 20090501
  7. CLOPIDOGREL [Concomitant]
     Indication: ARTERIOSCLEROSIS CORONARY ARTERY
     Dates: start: 20040301
  8. LANTUS [Suspect]
     Route: 058

REACTIONS (1)
  - RADIUS FRACTURE [None]
